FAERS Safety Report 6701444-5 (Version None)
Quarter: 2010Q2

REPORT INFORMATION
  Report Type: 
  Country: None (occurrence: None)
  Receive Date: 20100429
  Receipt Date: 20100414
  Transmission Date: 20101027
  Serious: Yes (Hospitalization, Other)
  Sender: FDA-Public Use
  Company Number: US-BAYER-201012541NA

PATIENT
  Age: 17 Year
  Sex: Female
  Weight: 72 kg

DRUGS (9)
  1. YAZ [Suspect]
     Indication: MENSTRUATION IRREGULAR
     Route: 048
     Dates: start: 20080807, end: 20081210
  2. WARFARIN SOD [Concomitant]
     Route: 065
     Dates: start: 20081217, end: 20090429
  3. PROMETHAZINE [Concomitant]
     Route: 065
     Dates: start: 20090817
  4. HYDROCONDONE/APA [Concomitant]
     Route: 065
     Dates: start: 20080512
  5. NAPROSYN [Concomitant]
     Route: 065
  6. NSAID [Concomitant]
     Route: 065
  7. AMOXICILLIN [Concomitant]
     Route: 065
  8. AZITHROMYCIN [Concomitant]
     Indication: MIGRAINE
     Route: 065
  9. CEFPROZIL [Concomitant]
     Route: 065

REACTIONS (14)
  - ARTHRALGIA [None]
  - DEEP VEIN THROMBOSIS [None]
  - DISCOMFORT [None]
  - DYSPNOEA [None]
  - LOBAR PNEUMONIA [None]
  - MUSCLE FATIGUE [None]
  - MUSCULOSKELETAL PAIN [None]
  - OEDEMA [None]
  - PNEUMONIA BACTERIAL [None]
  - POST THROMBOTIC SYNDROME [None]
  - PULMONARY EMBOLISM [None]
  - PYREXIA [None]
  - SKIN DISCOLOURATION [None]
  - SWELLING [None]
